FAERS Safety Report 13061285 (Version 1)
Quarter: 2016Q4

REPORT INFORMATION
  Report Type: Spontaneous
  Country: PT (occurrence: PT)
  Receive Date: 20161226
  Receipt Date: 20161226
  Transmission Date: 20170207
  Serious: Yes (Life-Threatening, Disabling)
  Sender: FDA-Public Use
  Company Number: PT-ACCORD-046722

PATIENT
  Age: 76 Year
  Sex: Female

DRUGS (7)
  1. SIMVASTATIN. [Suspect]
     Active Substance: SIMVASTATIN
     Indication: PERIPHERAL ISCHAEMIA
  2. SILDENAFIL/SILDENAFIL CITRATE [Suspect]
     Active Substance: SILDENAFIL CITRATE
     Indication: PERIPHERAL ISCHAEMIA
  3. BOSENTAN. [Concomitant]
     Active Substance: BOSENTAN
  4. NIFEDIPINE. [Concomitant]
     Active Substance: NIFEDIPINE
  5. ENOXAPARIN [Suspect]
     Active Substance: ENOXAPARIN
     Indication: PERIPHERAL ISCHAEMIA
     Dosage: FULL DOSE
  6. ACETYLSALICYLIC ACID [Suspect]
     Active Substance: ASPIRIN
     Indication: PERIPHERAL ISCHAEMIA
     Dosage: ALSO RECEIVED WITH NON-COMPLIANCE IN THE PREVIOUS 3 MONTHS
  7. PENTOXIFYLLINE. [Suspect]
     Active Substance: PENTOXIFYLLINE
     Indication: PERIPHERAL ISCHAEMIA

REACTIONS (6)
  - Leg amputation [None]
  - Off label use [Unknown]
  - Sepsis [None]
  - Drug ineffective [Unknown]
  - General physical health deterioration [None]
  - Necrosis [None]
